FAERS Safety Report 16804930 (Version 2)
Quarter: 2019Q3

REPORT INFORMATION
  Report Type: Spontaneous
  Country: US (occurrence: US)
  Receive Date: 20190913
  Receipt Date: 20190916
  Transmission Date: 20191005
  Serious: Yes (Hospitalization)
  Sender: FDA-Public Use
  Company Number: US-PFIZER INC-2019378899

PATIENT
  Age: 17 Year
  Sex: Female

DRUGS (1)
  1. IBUPROFEN. [Suspect]
     Active Substance: IBUPROFEN
     Dosage: 100 G, UNK (1466 MG/KG DOSE)
     Route: 048

REACTIONS (9)
  - Overdose [Unknown]
  - Acute kidney injury [Unknown]
  - Hypotension [Unknown]
  - Lactic acidosis [Unknown]
  - Upper gastrointestinal haemorrhage [Unknown]
  - Depressed level of consciousness [Recovered/Resolved]
  - Toxicity to various agents [Recovered/Resolved]
  - Chronic left ventricular failure [Recovered/Resolved]
  - Cardiomyopathy [Recovered/Resolved]
